FAERS Safety Report 6270425-0 (Version None)
Quarter: 2009Q3

REPORT INFORMATION
  Report Type: 
  Country: None (occurrence: None)
  Receive Date: 20090716
  Receipt Date: 20090706
  Transmission Date: 20100115
  Serious: Yes (Hospitalization)
  Sender: FDA-Public Use
  Company Number: PHEH2009US07138

PATIENT
  Sex: Female

DRUGS (1)
  1. TYZEKA [Suspect]
     Dosage: 600 MG, QD
     Route: 048

REACTIONS (3)
  - PETECHIAE [None]
  - PNEUMONIA [None]
  - SPLENECTOMY [None]
